FAERS Safety Report 9070332 (Version 1)
Quarter: 2013Q1

REPORT INFORMATION
  Report Type: Report from Study
  Country: US (occurrence: US)
  Receive Date: 20130129
  Receipt Date: 20130129
  Transmission Date: 20140127
  Serious: No
  Sender: FDA-Public Use
  Company Number: US-ABBOTT-12P-163-0927235-00

PATIENT
  Age: 58 Year
  Sex: Female

DRUGS (11)
  1. HUMIRA 40 MG/0.8 ML PEN [Suspect]
     Indication: RHEUMATOID ARTHRITIS
     Route: 058
  2. LEVOTHROID [Concomitant]
     Indication: THYROID DISORDER
     Dosage: 50 MCG, ONE DAILY
     Route: 048
  3. CALCIUM 600 PLUS VITAMIN D [Concomitant]
     Indication: MINERAL SUPPLEMENTATION
     Dosage: TWO DAILY
     Route: 048
  4. FOLIC ACID [Concomitant]
     Indication: RHEUMATOID ARTHRITIS
     Dosage: 800 MCG, ONE DAILY
     Route: 048
  5. PLAQUENIL [Concomitant]
     Indication: RHEUMATOID ARTHRITIS
     Dosage: 20 MG, 2 TABS AT BEDTIME
     Route: 048
  6. ARAVA [Concomitant]
     Indication: RHEUMATOID ARTHRITIS
     Dosage: 20 MG, ONE DAILY
     Route: 048
  7. PRAVASTATIN [Concomitant]
     Indication: BLOOD CHOLESTEROL
     Dosage: 80 MG, 1 TAB DAILY
  8. BABY ASPIRIN [Concomitant]
     Indication: PROPHYLAXIS
     Dosage: 81 MG DAILY
     Route: 048
  9. BABY ASPIRIN [Concomitant]
     Indication: NON-CARDIAC CHEST PAIN
  10. CELEXA [Concomitant]
     Indication: ANXIETY
     Dosage: 20 MG, ONE DAILY
     Route: 048
  11. NORVASC [Concomitant]
     Indication: HYPERTENSION
     Dosage: 5 MG DAILY
     Route: 048

REACTIONS (3)
  - Musculoskeletal pain [Not Recovered/Not Resolved]
  - Gait disturbance [Unknown]
  - Burning sensation [Not Recovered/Not Resolved]
